FAERS Safety Report 15995122 (Version 1)
Quarter: 2019Q1

REPORT INFORMATION
  Report Type: Spontaneous
  Country: US (occurrence: US)
  Receive Date: 20190128
  Receipt Date: 20190128
  Transmission Date: 20190418
  Serious: No
  Sender: FDA-Public Use
  Company Number: None

PATIENT
  Age: 57 Year
  Sex: Female

DRUGS (3)
  1. MEKINIST [Suspect]
     Active Substance: TRAMETINIB DIMETHYL SULFOXIDE
     Dates: start: 20190122
  2. TAFINLAR [Concomitant]
     Active Substance: DABRAFENIB MESYLATE
  3. TAFINLAR [Suspect]
     Active Substance: DABRAFENIB MESYLATE
     Dates: start: 20190122

REACTIONS (3)
  - Nausea [None]
  - Pyrexia [None]
  - Migraine [None]

NARRATIVE: CASE EVENT DATE: 20190123
